FAERS Safety Report 25234408 (Version 1)
Quarter: 2025Q2

REPORT INFORMATION
  Report Type: Spontaneous
  Country: US (occurrence: US)
  Receive Date: 20250424
  Receipt Date: 20250424
  Transmission Date: 20250716
  Serious: Yes (Other)
  Sender: MYLAN
  Company Number: US-MYLANLABS-2025M1035300

PATIENT
  Age: 33 Year
  Sex: Female

DRUGS (24)
  1. DOXORUBICIN [Suspect]
     Active Substance: DOXORUBICIN
     Indication: Anaplastic large cell lymphoma T- and null-cell types stage IV
  2. DOXORUBICIN [Suspect]
     Active Substance: DOXORUBICIN
     Indication: ALK gene rearrangement positive
     Route: 065
  3. DOXORUBICIN [Suspect]
     Active Substance: DOXORUBICIN
     Route: 065
  4. DOXORUBICIN [Suspect]
     Active Substance: DOXORUBICIN
  5. ETOPOSIDE [Suspect]
     Active Substance: ETOPOSIDE
     Indication: Anaplastic large cell lymphoma T- and null-cell types stage IV
  6. ETOPOSIDE [Suspect]
     Active Substance: ETOPOSIDE
     Indication: ALK gene rearrangement positive
     Route: 065
  7. ETOPOSIDE [Suspect]
     Active Substance: ETOPOSIDE
     Route: 065
  8. ETOPOSIDE [Suspect]
     Active Substance: ETOPOSIDE
  9. PREDNISONE [Suspect]
     Active Substance: PREDNISONE
     Indication: Anaplastic large cell lymphoma T- and null-cell types stage IV
  10. PREDNISONE [Suspect]
     Active Substance: PREDNISONE
     Indication: ALK gene rearrangement positive
     Route: 065
  11. PREDNISONE [Suspect]
     Active Substance: PREDNISONE
     Route: 065
  12. PREDNISONE [Suspect]
     Active Substance: PREDNISONE
  13. BRENTUXIMAB [Suspect]
     Active Substance: BRENTUXIMAB
     Indication: Anaplastic large cell lymphoma T- and null-cell types stage IV
     Route: 065
  14. BRENTUXIMAB [Suspect]
     Active Substance: BRENTUXIMAB
     Indication: ALK gene rearrangement positive
  15. BRENTUXIMAB [Suspect]
     Active Substance: BRENTUXIMAB
  16. BRENTUXIMAB [Suspect]
     Active Substance: BRENTUXIMAB
     Route: 065
  17. BRENTUXIMAB [Suspect]
     Active Substance: BRENTUXIMAB
     Route: 065
  18. BRENTUXIMAB [Suspect]
     Active Substance: BRENTUXIMAB
  19. BRENTUXIMAB [Suspect]
     Active Substance: BRENTUXIMAB
  20. BRENTUXIMAB [Suspect]
     Active Substance: BRENTUXIMAB
     Route: 065
  21. CYCLOPHOSPHAMIDE [Suspect]
     Active Substance: CYCLOPHOSPHAMIDE
     Indication: Anaplastic large cell lymphoma T- and null-cell types stage IV
  22. CYCLOPHOSPHAMIDE [Suspect]
     Active Substance: CYCLOPHOSPHAMIDE
     Indication: ALK gene rearrangement positive
     Route: 065
  23. CYCLOPHOSPHAMIDE [Suspect]
     Active Substance: CYCLOPHOSPHAMIDE
     Route: 065
  24. CYCLOPHOSPHAMIDE [Suspect]
     Active Substance: CYCLOPHOSPHAMIDE

REACTIONS (2)
  - Febrile neutropenia [Unknown]
  - Abdominal pain [Unknown]
